FAERS Safety Report 6851615-2 (Version None)
Quarter: 2010Q3

REPORT INFORMATION
  Report Type: 
  Country: None (occurrence: None)
  Receive Date: 20100717
  Receipt Date: 20080122
  Transmission Date: 20110219
  Serious: No
  Sender: FDA-Public Use
  Company Number: US-PFIZER INC-2008007732

PATIENT
  Sex: Male
  Weight: 63.636 kg

DRUGS (3)
  1. CHANTIX [Suspect]
     Indication: SMOKING CESSATION THERAPY
     Route: 048
     Dates: start: 20080101
  2. VICODIN [Concomitant]
     Indication: BACK PAIN
  3. KLONOPIN [Concomitant]
     Indication: ANXIETY

REACTIONS (1)
  - SOMNOLENCE [None]
